FAERS Safety Report 7678454-7 (Version None)
Quarter: 2011Q3

REPORT INFORMATION
  Report Type: 
  Country: None (occurrence: None)
  Receive Date: 20110811
  Receipt Date: 20110801
  Transmission Date: 20111222
  Serious: Yes (Hospitalization, Other)
  Sender: FDA-Public Use
  Company Number: US-BAYER-2011-039201

PATIENT
  Age: 28 Year
  Sex: Female
  Weight: 65.76 kg

DRUGS (6)
  1. YAZ [Suspect]
     Indication: CONTRACEPTION
     Dosage: UNK
     Dates: start: 20090501, end: 20091101
  2. LEXAPRO [Concomitant]
     Dosage: UNK
     Dates: start: 20100107, end: 20100309
  3. EXCEDRIN (MIGRAINE) [Concomitant]
     Dosage: UNK UNK, PRN
  4. ORTHO TRI-CYCLEN LO [Concomitant]
  5. MIRALAX [Concomitant]
  6. YAZ [Suspect]
     Indication: ACNE

REACTIONS (11)
  - CHOLECYSTITIS ACUTE [None]
  - NAUSEA [None]
  - VOMITING [None]
  - ABDOMINAL PAIN [None]
  - GALLBLADDER INJURY [None]
  - DIARRHOEA [None]
  - WHITE BLOOD CELL COUNT INCREASED [None]
  - CHOLECYSTITIS CHRONIC [None]
  - ABDOMINAL PAIN UPPER [None]
  - ABDOMINAL TENDERNESS [None]
  - CHOLELITHIASIS [None]
